FAERS Safety Report 7816165-5 (Version None)
Quarter: 2011Q4

REPORT INFORMATION
  Report Type: 
  Country: None (occurrence: None)
  Receive Date: 20111015
  Receipt Date: 20111009
  Transmission Date: 20120403
  Serious: Yes (Death)
  Sender: FDA-Public Use
  Company Number: IN-ROCHE-804103

PATIENT
  Sex: Female

DRUGS (4)
  1. TAXOTERE [Concomitant]
     Route: 042
  2. CYCLOPHOSPHAMIDE [Concomitant]
     Route: 042
  3. HERCEPTIN [Suspect]
  4. HERCEPTIN [Suspect]
     Indication: BREAST CANCER
     Route: 042

REACTIONS (3)
  - INTERSTITIAL LUNG DISEASE [None]
  - RESPIRATORY FAILURE [None]
  - PULMONARY FIBROSIS [None]
